FAERS Safety Report 9224399 (Version 1)
Quarter: 2013Q2

REPORT INFORMATION
  Report Type: Spontaneous
  Country: US (occurrence: None)
  Receive Date: 20130409
  Receipt Date: 20130409
  Transmission Date: 20140414
  Serious: Yes (Disabling)
  Sender: FDA-Public Use
  Company Number: None

PATIENT
  Sex: 0
  Weight: 66.23 kg

DRUGS (1)
  1. PROLIA [Suspect]
     Indication: OSTEOPOROSIS
     Dates: start: 201012, end: 201106

REACTIONS (4)
  - Tooth loss [None]
  - Dental caries [None]
  - Tooth disorder [None]
  - Bladder cancer [None]
